FAERS Safety Report 12874461 (Version 5)
Quarter: 2018Q1

REPORT INFORMATION
  Report Type: Spontaneous
  Country: US (occurrence: US)
  Receive Date: 20161021
  Receipt Date: 20180112
  Transmission Date: 20180508
  Serious: No
  Sender: FDA-Public Use
  Company Number: US-ACTELION-A-US2016-142992

PATIENT
  Age: 38 Year
  Sex: Female

DRUGS (19)
  1. CARAFATE [Concomitant]
     Active Substance: SUCRALFATE
  2. UPTRAVI [Suspect]
     Active Substance: SELEXIPAG
     Dosage: 800 MCG, 1 DAY
     Route: 048
     Dates: start: 20160924, end: 20160924
  3. AMBRISENTAN [Suspect]
     Active Substance: AMBRISENTAN
     Indication: PULMONARY HYPERTENSION
     Dosage: 10 MG, QD
     Route: 065
     Dates: start: 20150613
  4. FOLIC ACID. [Concomitant]
     Active Substance: FOLIC ACID
  5. ASPIRIN 81 [Concomitant]
     Active Substance: ASPIRIN
  6. UPTRAVI [Suspect]
     Active Substance: SELEXIPAG
     Dosage: 600 MCG, BID
     Route: 048
  7. CYCLOBENZAPRINE HCL [Concomitant]
     Active Substance: CYCLOBENZAPRINE HYDROCHLORIDE
  8. DRISDOL [Concomitant]
     Active Substance: ERGOCALCIFEROL
  9. UPTRAVI [Suspect]
     Active Substance: SELEXIPAG
     Dosage: 1400 MCG, BID
     Route: 048
  10. PLAQUENIL [Concomitant]
     Active Substance: HYDROXYCHLOROQUINE SULFATE
  11. XOPENEX [Concomitant]
     Active Substance: LEVALBUTEROL HYDROCHLORIDE
  12. BENADRYL [Concomitant]
     Active Substance: DIPHENHYDRAMINE HYDROCHLORIDE
  13. NIFEDIPINE. [Concomitant]
     Active Substance: NIFEDIPINE
  14. DEXILANT [Concomitant]
     Active Substance: DEXLANSOPRAZOLE
  15. ADCIRCA [Concomitant]
     Active Substance: TADALAFIL
  16. RESTORIL [Concomitant]
     Active Substance: TEMAZEPAM
  17. PEPCID [Concomitant]
     Active Substance: FAMOTIDINE
  18. UPTRAVI [Suspect]
     Active Substance: SELEXIPAG
     Indication: PULMONARY ARTERIAL HYPERTENSION
     Dosage: 200 MCG, BID
     Route: 048
     Dates: start: 20160914, end: 20160920
  19. UPTRAVI [Suspect]
     Active Substance: SELEXIPAG
     Dosage: 400 MCG, BID
     Route: 048
     Dates: start: 20160921

REACTIONS (15)
  - Tachycardia [Unknown]
  - Abdominal pain [Unknown]
  - Dyspnoea [Unknown]
  - Diarrhoea [Recovering/Resolving]
  - Palpitations [Not Recovered/Not Resolved]
  - Headache [Recovering/Resolving]
  - Nausea [Recovering/Resolving]
  - Vomiting [Recovering/Resolving]
  - Chest discomfort [Recovering/Resolving]
  - Migraine [Unknown]
  - Tinnitus [Unknown]
  - Dyspnoea exertional [Unknown]
  - Myalgia [Recovering/Resolving]
  - Pain [Recovering/Resolving]
  - Wrong dose [Recovered/Resolved]

NARRATIVE: CASE EVENT DATE: 20160914
